FAERS Safety Report 8029982-6 (Version None)
Quarter: 2012Q1

REPORT INFORMATION
  Report Type: 
  Country: None (occurrence: None)
  Receive Date: 20120109
  Receipt Date: 20120104
  Transmission Date: 20120608
  Serious: Yes (Life-Threatening)
  Sender: FDA-Public Use
  Company Number: AT-BAYER-2011-121853

PATIENT
  Age: 72 Year
  Sex: Male
  Weight: 66 kg

DRUGS (1)
  1. NEXAVAR [Suspect]
     Indication: GASTROINTESTINAL STROMAL TUMOUR
     Dosage: 400 MG, BID
     Route: 048
     Dates: start: 20110501, end: 20111201

REACTIONS (7)
  - DYSPNOEA EXERTIONAL [None]
  - MELAENA [None]
  - HYPOSIDERAEMIA [None]
  - CARDIAC FAILURE [None]
  - ANAEMIA [None]
  - INTESTINAL HAEMORRHAGE [None]
  - OEDEMA PERIPHERAL [None]
